FAERS Safety Report 6531884-9 (Version None)
Quarter: 2010Q1

REPORT INFORMATION
  Report Type: 
  Country: None (occurrence: None)
  Receive Date: 20100107
  Receipt Date: 20100107
  Transmission Date: 20100710
  Serious: Yes (Life-Threatening, Hospitalization)
  Sender: FDA-Public Use
  Company Number: None

PATIENT
  Age: 44 Year
  Sex: Male
  Weight: 95.7 kg

DRUGS (5)
  1. RITUXIMAB [Suspect]
     Indication: LYMPHOMA
     Dosage: 375 MG/MG2, 5 TIMES, IVPB
     Route: 042
     Dates: start: 20091105, end: 20091218
  2. FILGRASTIM [Concomitant]
  3. METHOTREXATE SODIUM [Concomitant]
  4. FLUDARABINE PHOSPHATE [Concomitant]
  5. CYCLOPHOSOMIDE [Concomitant]

REACTIONS (2)
  - DEVICE RELATED INFECTION [None]
  - SEPSIS [None]
